FAERS Safety Report 25908589 (Version 1)
Quarter: 2025Q4

REPORT INFORMATION
  Report Type: Spontaneous
  Country: GE (occurrence: GE)
  Receive Date: 20251010
  Receipt Date: 20251010
  Transmission Date: 20260117
  Serious: Yes (Death)
  Sender: NOVARTIS
  Company Number: GE-002147023-NVSC2025GE156830

PATIENT
  Sex: Male

DRUGS (1)
  1. TASIGNA [Suspect]
     Active Substance: NILOTINIB
     Indication: Chronic myeloid leukaemia
     Dosage: 400 MG, BID,4 X 200MG TABLET
     Route: 065

REACTIONS (1)
  - Death [Fatal]
